FAERS Safety Report 12789607 (Version 1)
Quarter: 2016Q3

REPORT INFORMATION
  Report Type: Spontaneous
  Country: US (occurrence: US)
  Receive Date: 20160928
  Receipt Date: 20160928
  Transmission Date: 20161109
  Serious: Yes (Hospitalization)
  Sender: FDA-Public Use
  Company Number: US-UNITED THERAPEUTICS-UNT-2016-014694

PATIENT
  Age: 45 Year
  Sex: Female
  Weight: 53.97 kg

DRUGS (3)
  1. OPSUMIT [Concomitant]
     Active Substance: MACITENTAN
     Indication: PRODUCT USED FOR UNKNOWN INDICATION
  2. REMODULIN [Suspect]
     Active Substance: TREPROSTINIL
     Indication: PULMONARY ARTERIAL HYPERTENSION
     Dosage: 0.250 ?G/KG, CONTINUING
     Route: 041
     Dates: start: 20060201
  3. SILDENAFIL. [Concomitant]
     Active Substance: SILDENAFIL
     Indication: PRODUCT USED FOR UNKNOWN INDICATION

REACTIONS (1)
  - Pulmonary oedema [Unknown]

NARRATIVE: CASE EVENT DATE: 20160914
